FAERS Safety Report 5097996-4 (Version None)
Quarter: 2006Q3

REPORT INFORMATION
  Report Type: 
  Country: None (occurrence: None)
  Receive Date: 20060905
  Receipt Date: 20060823
  Transmission Date: 20061208
  Serious: Yes (Hospitalization)
  Sender: FDA-Public Use
  Company Number: 2006-06-0118

PATIENT
  Age: 34 Year
  Sex: Male

DRUGS (5)
  1. BETAMETHASONE [Suspect]
     Indication: PHARYNGITIS
     Dosage: PO
     Route: 048
     Dates: start: 20060216, end: 20060218
  2. ACETAMINOPHEN [Suspect]
     Indication: PHARYNGITIS
     Dosage: PO
     Route: 048
     Dates: start: 20060216, end: 20060223
  3. HELICIDINE [Concomitant]
  4. CARBOCISTEINE [Concomitant]
  5. PARACETAMOL [Concomitant]

REACTIONS (2)
  - MYCOPLASMA SEROLOGY POSITIVE [None]
  - STEVENS-JOHNSON SYNDROME [None]
